FAERS Safety Report 10885049 (Version 1)
Quarter: 2015Q1

REPORT INFORMATION
  Report Type: Spontaneous
  Country: US (occurrence: US)
  Receive Date: 20150304
  Receipt Date: 20150304
  Transmission Date: 20150721
  Serious: No
  Sender: FDA-Public Use
  Company Number: US-TEVA-480164USA

PATIENT
  Age: 53 Year
  Sex: Female
  Weight: 87.98 kg

DRUGS (1)
  1. CETIRIZINE W/PSEUDOEPHEDRINE [Suspect]
     Active Substance: CETIRIZINE HYDROCHLORIDE\PSEUDOEPHEDRINE HYDROCHLORIDE
     Indication: SEASONAL ALLERGY
     Dosage: 120 MG/ 50 MG
     Route: 048
     Dates: start: 201404

REACTIONS (1)
  - Headache [Unknown]

NARRATIVE: CASE EVENT DATE: 20140502
